FAERS Safety Report 5345137-8 (Version None)
Quarter: 2007Q2

REPORT INFORMATION
  Report Type: 
  Country: None (occurrence: None)
  Receive Date: 20070601
  Receipt Date: 20070521
  Transmission Date: 20071010
  Serious: Yes (Death)
  Sender: FDA-Public Use
  Company Number: ENC200700070

PATIENT
  Age: 70 Year
  Sex: Female
  Weight: 45.8 kg

DRUGS (12)
  1. ARGATROBAN [Suspect]
     Indication: COAGULOPATHY
     Dosage: SEE IMAGE
     Route: 042
     Dates: start: 20070511, end: 20070512
  2. ARGATROBAN [Suspect]
     Indication: COAGULOPATHY
     Dosage: SEE IMAGE
     Route: 042
     Dates: start: 20070512, end: 20070513
  3. DIGOXIN [Concomitant]
  4. ERYTHROPOIETIN (ERYTHROPOIETIN) [Concomitant]
  5. PHENYTOIN [Concomitant]
  6. INSULIN (INSULIN) [Concomitant]
  7. LABETALOL HCL [Concomitant]
  8. PREVACID [Concomitant]
  9. VERSED [Concomitant]
  10. VANCOMYCIN [Concomitant]
  11. VERAPAMIL [Concomitant]
  12. MEROPENEM (MEROPENEM) [Concomitant]

REACTIONS (2)
  - COAGULATION TIME PROLONGED [None]
  - INTERNATIONAL NORMALISED RATIO INCREASED [None]
